FAERS Safety Report 11651977 (Version 1)
Quarter: 2015Q4

REPORT INFORMATION
  Report Type: Report from Study
  Country: VE (occurrence: VE)
  Receive Date: 20151022
  Receipt Date: 20151022
  Transmission Date: 20160304
  Serious: Yes (Life-Threatening, Hospitalization)
  Sender: FDA-Public Use
  Company Number: PHHY2015VE136103

PATIENT

DRUGS (1)
  1. GLIVEC [Suspect]
     Active Substance: IMATINIB MESYLATE
     Indication: LEUKAEMIA
     Dosage: 400 MG, QD
     Route: 048

REACTIONS (9)
  - Dizziness [Recovering/Resolving]
  - Dyspnoea [Recovering/Resolving]
  - Fatigue [Recovering/Resolving]
  - Influenza [Recovering/Resolving]
  - Rash [Recovering/Resolving]
  - Pallor [Recovering/Resolving]
  - Swelling [Recovering/Resolving]
  - Feeling abnormal [Recovering/Resolving]
  - Malaise [Recovering/Resolving]
